FAERS Safety Report 6955689-X (Version None)
Quarter: 2010Q3

REPORT INFORMATION
  Report Type: 
  Country: None (occurrence: None)
  Receive Date: 20100830
  Receipt Date: 20100817
  Transmission Date: 20110219
  Serious: Yes (Other)
  Sender: FDA-Public Use
  Company Number: US-WATSON-2010-11417

PATIENT
  Age: 31 Year
  Sex: Female

DRUGS (2)
  1. TOPIRAMATE [Suspect]
     Indication: PRODUCT USED FOR UNKNOWN INDICATION
     Dosage: UNK
  2. LORAZEPAM [Suspect]
     Indication: PRODUCT USED FOR UNKNOWN INDICATION
     Dosage: UNK

REACTIONS (7)
  - BACK INJURY [None]
  - DYSARTHRIA [None]
  - EYELID PTOSIS [None]
  - IMPAIRED DRIVING ABILITY [None]
  - MYDRIASIS [None]
  - NECK INJURY [None]
  - NYSTAGMUS [None]
